FAERS Safety Report 4952366-1 (Version None)
Quarter: 2006Q1

REPORT INFORMATION
  Report Type: 
  Country: None (occurrence: None)
  Receive Date: 20060320
  Receipt Date: 20060314
  Transmission Date: 20060701
  Serious: Yes (Death)
  Sender: FDA-Public Use
  Company Number: 05-06-1056

PATIENT
  Age: 49 Year
  Sex: Male
  Weight: 98.4306 kg

DRUGS (6)
  1. CLOZAPINE [Suspect]
     Indication: SCHIZOAFFECTIVE DISORDER
     Dosage: 175 MG, QD, ORAL
     Route: 048
     Dates: start: 20030501, end: 20050501
  2. GABAPENTIN [Concomitant]
  3. CARBAMAZEPINE [Concomitant]
  4. TOCOPHEROL CONCENTRATE CAP [Concomitant]
  5. PHENYTOIN [Concomitant]
  6. OLANZAPINE [Concomitant]

REACTIONS (4)
  - HAEMORRHAGIC STROKE [None]
  - LETHARGY [None]
  - URINARY TRACT INFECTION [None]
  - WEIGHT DECREASED [None]
